FAERS Safety Report 17498128 (Version 1)
Quarter: 2020Q1

REPORT INFORMATION
  Report Type: Spontaneous
  Country: US (occurrence: US)
  Receive Date: 20200304
  Receipt Date: 20200304
  Transmission Date: 20200409
  Serious: No
  Sender: FDA-Public Use
  Company Number: US-TEVA-2020-US-1194388

PATIENT
  Sex: Female

DRUGS (5)
  1. COPAXONE [Suspect]
     Active Substance: GLATIRAMER ACETATE
     Indication: MULTIPLE SCLEROSIS
     Dosage: EVERY MONDAY, WEDNESDAY AND FRIDAY
     Route: 058
  2. ESZOPICLONE. [Concomitant]
     Active Substance: ESZOPICLONE
  3. PAROXETINE. [Concomitant]
     Active Substance: PAROXETINE
  4. CLINDAMYCIN. [Concomitant]
     Active Substance: CLINDAMYCIN
  5. LUNESTA [Concomitant]
     Active Substance: ESZOPICLONE

REACTIONS (2)
  - Injection site scar [Unknown]
  - Injection site pain [Unknown]
